FAERS Safety Report 24251992 (Version 2)
Quarter: 2024Q3

REPORT INFORMATION
  Report Type: Spontaneous
  Country: GB (occurrence: GB)
  Receive Date: 20240827
  Receipt Date: 20240830
  Transmission Date: 20241016
  Serious: Yes (Other)
  Sender: JOHNSON AND JOHNSON
  Company Number: GB-JNJFOC-20240864764

PATIENT
  Age: 62 Year
  Sex: Female

DRUGS (1)
  1. SIMPONI [Suspect]
     Active Substance: GOLIMUMAB
     Indication: Rheumatoid arthritis
     Dosage: 50 MG/0.5 ML
     Route: 058

REACTIONS (4)
  - Joint dislocation [Unknown]
  - Fall [Unknown]
  - Hyponatraemic syndrome [Not Recovered/Not Resolved]
  - Anaemia [Not Recovered/Not Resolved]

NARRATIVE: CASE EVENT DATE: 20240501
